FAERS Safety Report 24781275 (Version 1)
Quarter: 2024Q4

REPORT INFORMATION
  Report Type: Spontaneous
  Country: SE (occurrence: SE)
  Receive Date: 20241227
  Receipt Date: 20241227
  Transmission Date: 20250114
  Serious: Yes (Other)
  Sender: IDORSIA PHARMACEUTICALS
  Company Number: None

PATIENT
  Age: 50 Year
  Sex: Male

DRUGS (5)
  1. QUVIVIQ [Suspect]
     Active Substance: DARIDOREXANT
     Indication: Delayed sleep phase
     Dosage: UNK
     Route: 065
  2. QUVIVIQ [Suspect]
     Active Substance: DARIDOREXANT
     Indication: Insomnia
  3. CONCERTA [Concomitant]
     Active Substance: METHYLPHENIDATE HYDROCHLORIDE
     Dosage: UNK
  4. LOPERAMIDE [Concomitant]
     Active Substance: LOPERAMIDE
  5. COLESTIPOL [Concomitant]
     Active Substance: COLESTIPOL
     Dosage: UNK

REACTIONS (5)
  - Cataplexy [Unknown]
  - Muscular weakness [Unknown]
  - Fatigue [Unknown]
  - Sleep paralysis [Unknown]
  - Therapeutic product effect delayed [Unknown]
